FAERS Safety Report 10257314 (Version 1)
Quarter: 2014Q2

REPORT INFORMATION
  Report Type: Spontaneous
  Country: US (occurrence: None)
  Receive Date: 20140623
  Receipt Date: 20140623
  Transmission Date: 20141212
  Serious: Yes (Hospitalization, Disabling)
  Sender: FDA-Public Use
  Company Number: None

PATIENT
  Age: 64 Year
  Sex: Male
  Weight: 119.75 kg

DRUGS (1)
  1. LAMISIL [Suspect]
     Indication: TINEA PEDIS
     Dosage: 250 MG, 90 PILLS, ONE TABLET/DAY, BY MOUTH
     Route: 048
     Dates: start: 201404, end: 201404

REACTIONS (3)
  - Rash generalised [None]
  - Blister [None]
  - Skin exfoliation [None]
